FAERS Safety Report 13278456 (Version 1)
Quarter: 2017Q1

REPORT INFORMATION
  Report Type: Spontaneous
  Country: FR (occurrence: FR)
  Receive Date: 20170228
  Receipt Date: 20170228
  Transmission Date: 20170428
  Serious: Yes (Hospitalization)
  Sender: FDA-Public Use
  Company Number: FR-SA-2017SA024559

PATIENT
  Age: 46 Year
  Sex: Female

DRUGS (3)
  1. EPINEPHRINE. [Suspect]
     Active Substance: EPINEPHRINE
     Indication: VASOPLEGIA SYNDROME
     Dosage: GAMMA/MIN
     Route: 065
  2. NOREPINEPHRINE [Suspect]
     Active Substance: NOREPINEPHRINE\NOREPINEPHRINE BITARTRATE
     Indication: VASOPLEGIA SYNDROME
     Dosage: GAMMA/MIN
     Route: 065
  3. DILTIAZEM. [Suspect]
     Active Substance: DILTIAZEM
     Dosage: EXTENDED RELEASE
     Route: 048

REACTIONS (6)
  - Hypotension [Recovering/Resolving]
  - Drug ineffective [Unknown]
  - Overdose [Recovering/Resolving]
  - Acute kidney injury [Recovering/Resolving]
  - Lactic acidosis [Recovered/Resolved]
  - Vasoplegia syndrome [Recovering/Resolving]
